FAERS Safety Report 9282991 (Version 1)
Quarter: 2013Q2

REPORT INFORMATION
  Report Type: Spontaneous
  Country: US (occurrence: US)
  Receive Date: 20130510
  Receipt Date: 20130510
  Transmission Date: 20140414
  Serious: No
  Sender: FDA-Public Use
  Company Number: US-GLAXOSMITHKLINE-A0971559A

PATIENT
  Age: 44 Year
  Sex: Female

DRUGS (2)
  1. TYKERB [Suspect]
     Dosage: 1000MG PER DAY
     Route: 048
     Dates: start: 20120210
  2. XELODA [Suspect]
     Route: 065
     Dates: start: 201203

REACTIONS (5)
  - Erythema [Recovering/Resolving]
  - Skin fissures [Recovering/Resolving]
  - Palmar erythema [Recovering/Resolving]
  - Skin fissures [Recovering/Resolving]
  - Pruritus [Unknown]
